FAERS Safety Report 10722175 (Version 1)
Quarter: 2015Q1

REPORT INFORMATION
  Report Type: Spontaneous
  Country: US (occurrence: US)
  Receive Date: 20150119
  Receipt Date: 20150119
  Transmission Date: 20150721
  Serious: No
  Sender: FDA-Public Use
  Company Number: US-UPSHER-SMITH LABORATORIES, INC.-14000479

PATIENT

DRUGS (7)
  1. WELLBUTRIN [Suspect]
     Active Substance: BUPROPION HYDROCHLORIDE
     Dosage: UNK
     Dates: end: 20140131
  2. LATUDA [Suspect]
     Active Substance: LURASIDONE HYDROCHLORIDE
     Indication: BIPOLAR DISORDER
     Dosage: 40 MG, QD
     Route: 048
     Dates: start: 20140104, end: 20140130
  3. ABILIFY [Concomitant]
     Active Substance: ARIPIPRAZOLE
     Dosage: UNK
     Dates: end: 20140104
  4. BENZTROPINE MESYLATE. [Suspect]
     Active Substance: BENZTROPINE MESYLATE
     Dosage: 0.5 MG, UNK
     Route: 065
     Dates: start: 201310, end: 201401
  5. LAMICTAL [Suspect]
     Active Substance: LAMOTRIGINE
     Dosage: UNK
     Dates: end: 20140131
  6. BENZTROPINE MESYLATE. [Suspect]
     Active Substance: BENZTROPINE MESYLATE
     Dosage: 1.5 MG, UNK
     Route: 065
     Dates: start: 201401, end: 20140131
  7. LATUDA [Suspect]
     Active Substance: LURASIDONE HYDROCHLORIDE
     Indication: AUTISM SPECTRUM DISORDER
     Dosage: 20 MG, QD
     Route: 048
     Dates: start: 20140130, end: 20140131

REACTIONS (6)
  - Drug interaction [Recovered/Resolved]
  - Nystagmus [Recovering/Resolving]
  - Off label use [Recovered/Resolved]
  - Eye movement disorder [Recovered/Resolved]
  - Vision blurred [Unknown]
  - Rash [Recovering/Resolving]

NARRATIVE: CASE EVENT DATE: 201401
